FAERS Safety Report 5064320-2 (Version None)
Quarter: 2006Q3

REPORT INFORMATION
  Report Type: 
  Country: None (occurrence: None)
  Receive Date: 20060706
  Receipt Date: 20060313
  Transmission Date: 20061208
  Serious: No
  Sender: FDA-Public Use
  Company Number: 200610274BWH

PATIENT
  Age: 64 Year
  Sex: Male

DRUGS (4)
  1. LEVITRA [Suspect]
     Indication: ERECTILE DYSFUNCTION
     Dosage: 10 MG, TOTAL DAILY, ORAL
     Route: 048
  2. PROSCAR [Suspect]
     Indication: PROSTATIC DISORDER
  3. LIPITOR [Concomitant]
  4. DIOVAN [Concomitant]

REACTIONS (1)
  - ERECTILE DYSFUNCTION [None]
